FAERS Safety Report 4534432-8 (Version None)
Quarter: 2004Q4

REPORT INFORMATION
  Report Type: 
  Country: None (occurrence: None)
  Receive Date: 20041221
  Receipt Date: 20041221
  Transmission Date: 20050328
  Serious: Yes (Hospitalization)
  Sender: FDA-Public Use
  Company Number: None

PATIENT
  Age: 85 Year
  Sex: Female
  Weight: 57.3 kg

DRUGS (5)
  1. CELECOXIB [Suspect]
     Indication: ARTHRITIS
     Dosage: 200 MG PO DAILY
     Route: 048
     Dates: start: 20040301, end: 20041027
  2. ACETAMINOPHEN [Concomitant]
  3. DONEPEZIL HCL [Concomitant]
  4. DOCUSATE [Concomitant]
  5. METOLAZONE [Concomitant]

REACTIONS (5)
  - BLISTER [None]
  - LIP HAEMORRHAGE [None]
  - OEDEMA MOUTH [None]
  - OPEN WOUND [None]
  - RASH [None]
